FAERS Safety Report 12830829 (Version 3)
Quarter: 2016Q4

REPORT INFORMATION
  Report Type: Spontaneous
  Country: US (occurrence: US)
  Receive Date: 20161007
  Receipt Date: 20161209
  Transmission Date: 20170207
  Serious: Yes (Hospitalization, Other)
  Sender: FDA-Public Use
  Company Number: US-CELGENEUS-USA-2016101127

PATIENT
  Sex: Female
  Weight: 53.57 kg

DRUGS (5)
  1. REVLIMID [Suspect]
     Active Substance: LENALIDOMIDE
     Dosage: 15MG
     Route: 048
     Dates: start: 20160112
  2. REVLIMID [Suspect]
     Active Substance: LENALIDOMIDE
     Indication: PLASMA CELL MYELOMA
     Dosage: 15MG
     Route: 048
     Dates: start: 201310
  3. ASPIRIN. [Concomitant]
     Active Substance: ASPIRIN
     Indication: PRODUCT USED FOR UNKNOWN INDICATION
     Dosage: 325MG
     Route: 065
  4. TYLENOL [Concomitant]
     Active Substance: ACETAMINOPHEN
     Indication: PRODUCT USED FOR UNKNOWN INDICATION
     Dosage: 325MG
     Route: 065
  5. ELIQUIS [Concomitant]
     Active Substance: APIXABAN
     Indication: PRODUCT USED FOR UNKNOWN INDICATION
     Dosage: 2.5MG
     Route: 065

REACTIONS (11)
  - Diarrhoea [Unknown]
  - Hyperaesthesia [Unknown]
  - Vomiting [Unknown]
  - Tremor [Unknown]
  - Bipolar disorder [Unknown]
  - Sinus disorder [Unknown]
  - Dysphonia [Unknown]
  - Hypersensitivity [Unknown]
  - Fingerprint loss [Unknown]
  - Urinary tract infection [Unknown]
  - Nausea [Unknown]

NARRATIVE: CASE EVENT DATE: 2014
